FAERS Safety Report 16982319 (Version 1)
Quarter: 2019Q4

REPORT INFORMATION
  Report Type: Spontaneous
  Country: US (occurrence: US)
  Receive Date: 20191101
  Receipt Date: 20191101
  Transmission Date: 20200122
  Serious: Yes (Other)
  Sender: FDA-Public Use
  Company Number: PHHY2019US163800

PATIENT
  Age: 66 Year
  Sex: Female

DRUGS (7)
  1. CARBOPLATIN. [Suspect]
     Active Substance: CARBOPLATIN
     Indication: OVARIAN CANCER
     Dosage: UNK
     Route: 065
     Dates: start: 20150211, end: 20150422
  2. CARBOPLATIN. [Suspect]
     Active Substance: CARBOPLATIN
     Dosage: UNK, SIX CYCLES
     Route: 065
     Dates: start: 20170505, end: 20170829
  3. GEMCITABINE. [Suspect]
     Active Substance: GEMCITABINE
     Indication: OVARIAN CANCER
     Dosage: 600 MG/M2, UNK
     Route: 065
     Dates: start: 20170505, end: 20170829
  4. GEMCITABINE. [Suspect]
     Active Substance: GEMCITABINE
     Dosage: UNK (THREE CYCLES)
     Route: 065
     Dates: start: 20180620, end: 20180801
  5. NEULASTA [Suspect]
     Active Substance: PEGFILGRASTIM
     Indication: PRODUCT USED FOR UNKNOWN INDICATION
     Dosage: UNK
     Route: 065
  6. CARBOPLATIN. [Suspect]
     Active Substance: CARBOPLATIN
     Dosage: UNK (THREE CYCLES)
     Route: 065
     Dates: start: 20180620, end: 20180801
  7. OLAPARIB. [Suspect]
     Active Substance: OLAPARIB
     Indication: OVARIAN CANCER
     Dosage: 300 MG, BID (DAY 1-28)
     Route: 065
     Dates: start: 20171019, end: 20180505

REACTIONS (4)
  - Stomatitis [Unknown]
  - Ovarian cancer [Unknown]
  - Blister [Recovered/Resolved]
  - Malignant neoplasm progression [Unknown]

NARRATIVE: CASE EVENT DATE: 20190114
